FAERS Safety Report 4677549-X (Version None)
Quarter: 2005Q2

REPORT INFORMATION
  Report Type: 
  Country: None (occurrence: None)
  Receive Date: 20050527
  Receipt Date: 20050527
  Transmission Date: 20051028
  Serious: No
  Sender: FDA-Public Use
  Company Number: None

PATIENT
  Age: 74 Year
  Sex: Female
  Weight: 69.2643 kg

DRUGS (1)
  1. PARAPLATIN [Suspect]
     Indication: OVARIAN CANCER
     Dosage: 390 MG X1 INFUSION  INTRAVENOUS
     Route: 042
     Dates: start: 20050526, end: 20050526

REACTIONS (4)
  - BURNING SENSATION [None]
  - INFUSION RELATED REACTION [None]
  - NEUROLOGICAL SYMPTOM [None]
  - PARAESTHESIA [None]
